FAERS Safety Report 25248159 (Version 2)
Quarter: 2025Q2

REPORT INFORMATION
  Report Type: Report from Study
  Country: US (occurrence: US)
  Receive Date: 20250429
  Receipt Date: 20250506
  Transmission Date: 20250717
  Serious: Yes (Other)
  Sender: ABBVIE
  Company Number: US-ABBVIE-6253059

PATIENT
  Age: 49 Year
  Sex: Female

DRUGS (4)
  1. RINVOQ [Suspect]
     Active Substance: UPADACITINIB
     Indication: Psoriatic arthropathy
     Dosage: FORM STRENGTH: 15MG, DOSE FORM- EXTENDED RELEASE TABLET
     Route: 048
     Dates: start: 20250315, end: 202504
  2. RINVOQ [Suspect]
     Active Substance: UPADACITINIB
     Indication: Psoriatic arthropathy
     Dosage: FORM STRENGTH: 15MG, DOSE FORM- EXTENDED RELEASE TABLET
     Route: 048
     Dates: start: 202504, end: 20250416
  3. HUMIRA [Concomitant]
     Active Substance: ADALIMUMAB
     Indication: Product used for unknown indication
  4. ENBREL [Concomitant]
     Active Substance: ETANERCEPT
     Indication: Product used for unknown indication

REACTIONS (7)
  - Suicidal ideation [Recovered/Resolved]
  - Headache [Recovering/Resolving]
  - Respiratory disorder [Recovering/Resolving]
  - Nausea [Recovered/Resolved]
  - Mood altered [Recovering/Resolving]
  - Dyspnoea [Recovering/Resolving]
  - Depression [Recovering/Resolving]

NARRATIVE: CASE EVENT DATE: 20250403
